FAERS Safety Report 8183515-2 (Version None)
Quarter: 2012Q1

REPORT INFORMATION
  Report Type: 
  Country: None (occurrence: None)
  Receive Date: 20120130
  Receipt Date: 20110731
  Transmission Date: 20120608
  Serious: Yes (Hospitalization)
  Sender: FDA-Public Use
  Company Number: 038124

PATIENT
  Age: 6 Year
  Sex: Male

DRUGS (7)
  1. CLONAZEPAM [Concomitant]
  2. CARBAMAZEPINE [Concomitant]
  3. LEVETIRACETAM [Suspect]
     Indication: MYOCLONIC EPILEPSY
  4. TOPIRAMATE [Concomitant]
  5. LAMOTRIGINE [Concomitant]
  6. ZONISAMIDE [Concomitant]
  7. FELBAMATE [Concomitant]

REACTIONS (1)
  - MYOCLONIC EPILEPSY [None]
